FAERS Safety Report 11231056 (Version 1)
Quarter: 2015Q2

REPORT INFORMATION
  Report Type: Spontaneous
  Country: JP (occurrence: None)
  Receive Date: 20150629
  Receipt Date: 20150629
  Transmission Date: 20150821
  Serious: Yes (Hospitalization)
  Sender: FDA-Public Use
  Company Number: 2015-001252

PATIENT
  Age: 74 Year
  Sex: Male

DRUGS (2)
  1. CALCIUM LACTATE [Concomitant]
     Active Substance: CALCIUM LACTATE
  2. RISEDRONATE (RISEDRONATE SODIUM) UNKNOWN, UNKUNK [Suspect]
     Active Substance: RISEDRONATE SODIUM
     Indication: OSTEOPOROSIS
     Route: 048
     Dates: start: 20140617, end: 20150605

REACTIONS (6)
  - Pruritus [None]
  - Lymphoma [None]
  - Pyrexia [None]
  - Eczema [None]
  - Local swelling [None]
  - Rash [None]

NARRATIVE: CASE EVENT DATE: 201504
